FAERS Safety Report 13210333 (Version 2)
Quarter: 2017Q1

REPORT INFORMATION
  Report Type: Spontaneous
  Country: US (occurrence: US)
  Receive Date: 20170210
  Receipt Date: 20170216
  Transmission Date: 20170428
  Serious: Yes (Other)
  Sender: FDA-Public Use
  Company Number: US-BAYER-2017-019982

PATIENT
  Age: 66 Year
  Sex: Female

DRUGS (2)
  1. NEXIUM [Concomitant]
     Active Substance: ESOMEPRAZOLE MAGNESIUM
     Dosage: UNK
  2. DR. SCHOLLS INGROWN TOENAIL PAIN RELIEVER [Suspect]
     Active Substance: SODIUM SULFIDE
     Indication: THERAPEUTIC SKIN CARE TOPICAL
     Dosage: UNK, BID
     Route: 061
     Dates: start: 20170114, end: 20170115

REACTIONS (5)
  - Application site haemorrhage [Not Recovered/Not Resolved]
  - Pain in extremity [Not Recovered/Not Resolved]
  - Excessive granulation tissue [Not Recovered/Not Resolved]
  - Skin exfoliation [Not Recovered/Not Resolved]
  - Application site ischaemia [Not Recovered/Not Resolved]

NARRATIVE: CASE EVENT DATE: 20170115
